FAERS Safety Report 5500501-9 (Version None)
Quarter: 2007Q4

REPORT INFORMATION
  Report Type: 
  Country: None (occurrence: None)
  Receive Date: 20071029
  Receipt Date: 20071018
  Transmission Date: 20080405
  Serious: Yes (Hospitalization)
  Sender: FDA-Public Use
  Company Number: SE-ELI_LILLY_AND_COMPANY-SE200710004512

PATIENT
  Age: 75 Year
  Sex: Female

DRUGS (8)
  1. CYMBALTA [Suspect]
     Indication: DEPRESSION
     Dosage: UNK, UNKNOWN
     Route: 048
     Dates: start: 20070401
  2. CYMBALTA [Suspect]
     Dosage: 30 MG, DAILY (1/D)
     Route: 065
  3. MIRTAZAPINE [Concomitant]
     Indication: DEPRESSION
     Dosage: 45 MG, DAILY (1/D)
     Route: 065
  4. FOSAVANCE [Concomitant]
     Dosage: 70 MG, UNKNOWN
     Route: 065
  5. METOPROLOL [Concomitant]
     Dosage: UNK, UNKNOWN
     Route: 065
  6. ZOLPIDEM TARTRATE [Concomitant]
     Dosage: UNK, UNKNOWN
     Route: 065
  7. LEVOTHYROXINE SODIUM [Concomitant]
     Dosage: 100 UG, UNKNOWN
     Route: 065
  8. OXASCAND [Concomitant]
     Dosage: 15 MG, UNKNOWN
     Route: 065

REACTIONS (2)
  - DIZZINESS [None]
  - HOSPITALISATION [None]
